FAERS Safety Report 8842807 (Version 1)
Quarter: 2012Q4

REPORT INFORMATION
  Report Type: 
  Country: US (occurrence: US)
  Receive Date: 20121016
  Receipt Date: 20121016
  Transmission Date: 20130627
  Serious: No
  Sender: FDA-Public Use
  Company Number: US-PFIZER INC-2012251739

PATIENT
  Sex: Female

DRUGS (1)
  1. DEPO-MEDROL [Suspect]
     Dosage: UNK
     Dates: start: 20120924

REACTIONS (4)
  - Hyperhidrosis [Unknown]
  - Dyspepsia [Unknown]
  - Middle insomnia [Unknown]
  - Feeling abnormal [Unknown]
